FAERS Safety Report 14099910 (Version 4)
Quarter: 2018Q1

REPORT INFORMATION
  Report Type: Spontaneous
  Country: NZ (occurrence: NZ)
  Receive Date: 20171017
  Receipt Date: 20180123
  Transmission Date: 20180508
  Serious: Yes (Death, Other)
  Sender: FDA-Public Use
  Company Number: NZ-TAKEDA-2017MPI009162

PATIENT
  Age: 77 Year
  Sex: Male
  Weight: 50.2 kg

DRUGS (3)
  1. VELCADE [Suspect]
     Active Substance: BORTEZOMIB
     Indication: PLASMA CELL MYELOMA
     Dosage: UNK
     Route: 065
     Dates: start: 20111004
  2. PREDNISONE. [Suspect]
     Active Substance: PREDNISONE
     Indication: PLASMA CELL MYELOMA
     Dosage: UNK
     Route: 065
     Dates: start: 20111004, end: 201203
  3. MELPHALAN. [Suspect]
     Active Substance: MELPHALAN
     Indication: PLASMA CELL MYELOMA
     Dosage: UNK
     Route: 065
     Dates: start: 20111004, end: 201203

REACTIONS (3)
  - Death [Fatal]
  - Myelodysplastic syndrome [Not Recovered/Not Resolved]
  - Keratoacanthoma [Recovered/Resolved with Sequelae]

NARRATIVE: CASE EVENT DATE: 20140604
